FAERS Safety Report 9597025 (Version 2)
Quarter: 2013Q4

REPORT INFORMATION
  Report Type: Spontaneous
  Country: US (occurrence: US)
  Receive Date: 20131004
  Receipt Date: 20131202
  Transmission Date: 20140711
  Serious: Yes (Death)
  Sender: FDA-Public Use
  Company Number: US-FRI-1000049574

PATIENT
  Age: 95 Year
  Sex: Female

DRUGS (5)
  1. NAMENDA [Suspect]
     Indication: DEMENTIA
     Dosage: 5 MG
  2. NAMENDA [Suspect]
     Dosage: 10 MG
  3. DIOVAN [Concomitant]
     Indication: HYPERTENSION
  4. HIGH BLOOD PRESSURE MEDICATION NOS [Concomitant]
     Indication: HYPERTENSION
  5. PRANDIN [Concomitant]
     Indication: BLOOD GLUCOSE INCREASED
     Dosage: 0.05 MG

REACTIONS (1)
  - Cardiac failure congestive [Fatal]
